FAERS Safety Report 17792544 (Version 4)
Quarter: 2024Q3

REPORT INFORMATION
  Report Type: Spontaneous
  Country: US (occurrence: US)
  Receive Date: 20200515
  Receipt Date: 20240927
  Transmission Date: 20241016
  Serious: Yes (Hospitalization, Other)
  Sender: VERTEX
  Company Number: US-VERTEX PHARMACEUTICALS-2020-006850

PATIENT
  Sex: Female
  Weight: 52 kg

DRUGS (4)
  1. TRIKAFTA [Suspect]
     Active Substance: ELEXACAFTOR\IVACAFTOR\TEZACAFTOR
     Indication: Cystic fibrosis
     Dosage: 2 TABLETS IN AM AND 1 TABLET IN PM
     Route: 048
     Dates: start: 20200211, end: 202002
  2. TRIKAFTA [Suspect]
     Active Substance: ELEXACAFTOR\IVACAFTOR\TEZACAFTOR
     Dosage: REDUCED DOSE; TWO ORANGE TABS IN AM ON MONDAYS AND THURSDAYS ONLY; NOT TO TAKE ANY BLUE TABS
     Route: 048
     Dates: start: 20211218
  3. TRIKAFTA [Suspect]
     Active Substance: ELEXACAFTOR\IVACAFTOR\TEZACAFTOR
     Dosage: TWO PINK TABS ON MONDAY, WEDNESDAY AND FRIDAY.
     Route: 048
     Dates: start: 202405, end: 2024
  4. TRIKAFTA [Suspect]
     Active Substance: ELEXACAFTOR\IVACAFTOR\TEZACAFTOR
     Dosage: TWO ORANGE TABLETS IN AM AND BLUE TAB IN PM OF MONDAY, WEDNESDAY AND FRIDAY
     Route: 048
     Dates: start: 2024

REACTIONS (4)
  - Abdominal pain upper [Recovered/Resolved]
  - Hepatic enzyme increased [Unknown]
  - Bile duct stone [Unknown]
  - Biliary dilatation [Unknown]

NARRATIVE: CASE EVENT DATE: 20200101
